FAERS Safety Report 17400032 (Version 1)
Quarter: 2020Q1

REPORT INFORMATION
  Report Type: Report from Study
  Country: ES (occurrence: ES)
  Receive Date: 20200211
  Receipt Date: 20200211
  Transmission Date: 20200409
  Serious: Yes (Hospitalization)
  Sender: FDA-Public Use
  Company Number: ES-ACCORD-171937

PATIENT
  Age: 58 Year
  Sex: Male

DRUGS (6)
  1. TACROLIMUS. [Suspect]
     Active Substance: TACROLIMUS
     Indication: SOLID ORGAN TRANSPLANT
     Route: 048
     Dates: start: 201902
  2. PREDNISONE/PREDNISONE ACETATE [Interacting]
     Active Substance: PREDNISONE ACETATE
     Indication: SOLID ORGAN TRANSPLANT
     Route: 048
     Dates: start: 201902
  3. OMEPRAZOLE. [Concomitant]
     Active Substance: OMEPRAZOLE
     Route: 048
     Dates: start: 201707
  4. ATORVASTATIN [Concomitant]
     Active Substance: ATORVASTATIN
     Indication: DYSLIPIDAEMIA
     Route: 048
     Dates: start: 201902
  5. TAMSULOSIN [Concomitant]
     Active Substance: TAMSULOSIN
     Route: 048
     Dates: start: 201902
  6. MYCOPHENOLIC ACID. [Interacting]
     Active Substance: MYCOPHENOLIC ACID
     Indication: SOLID ORGAN TRANSPLANT
     Route: 048
     Dates: start: 201902, end: 20190826

REACTIONS (2)
  - Drug interaction [Unknown]
  - Cytomegalovirus gastritis [Recovering/Resolving]

NARRATIVE: CASE EVENT DATE: 20190810
